FAERS Safety Report 17939955 (Version 7)
Quarter: 2023Q4

REPORT INFORMATION
  Report Type: Spontaneous
  Country: ES (occurrence: ES)
  Receive Date: 20200624
  Receipt Date: 20231130
  Transmission Date: 20240110
  Serious: Yes (Hospitalization, Other)
  Sender: FDA-Public Use
  Company Number: ES-VELOXIS PHARMACEUTICALS-2020VELES-000499

PATIENT
  Age: 65 Year
  Sex: Male

DRUGS (12)
  1. MYCOPHENOLIC ACID [Suspect]
     Active Substance: MYCOPHENOLIC ACID
     Indication: Immunosuppressant drug therapy
     Dosage: UNK (DOSE REDUCE)
     Route: 065
     Dates: start: 202003
  2. MYCOPHENOLIC ACID [Suspect]
     Active Substance: MYCOPHENOLIC ACID
     Indication: Immunosuppression
     Dosage: UNK (DOSE REDUCE)
     Route: 065
     Dates: start: 202003
  3. LOPINAVIR\RITONAVIR [Interacting]
     Active Substance: LOPINAVIR\RITONAVIR
     Indication: COVID-19
     Dosage: 1 DOSAGE FORM, QD, 200/100MG (5 DAY)
     Route: 048
     Dates: start: 202003
  4. LOPINAVIR\RITONAVIR [Interacting]
     Active Substance: LOPINAVIR\RITONAVIR
     Dosage: UNK, BID (200/100 MG)
     Route: 048
     Dates: start: 202003
  5. PREDNISONE [Suspect]
     Active Substance: PREDNISONE
     Indication: Immunosuppressant drug therapy
     Dosage: UNK
     Route: 065
  6. PREDNISONE [Suspect]
     Active Substance: PREDNISONE
     Indication: Immunosuppression
     Dosage: UNK
     Route: 065
  7. ENVARSUS XR [Interacting]
     Active Substance: TACROLIMUS
     Indication: Immunosuppression
     Dosage: UNK
     Route: 065
     Dates: start: 202003
  8. ENVARSUS XR [Interacting]
     Active Substance: TACROLIMUS
     Indication: Lung transplant
     Dosage: UNK
     Route: 065
     Dates: start: 2020
  9. HYDROXYCHLOROQUINE [Suspect]
     Active Substance: HYDROXYCHLOROQUINE
     Indication: COVID-19
     Dosage: 400 MILLIGRAM (0.5 DAY)
     Route: 048
     Dates: start: 202003
  10. HYDROXYCHLOROQUINE [Suspect]
     Active Substance: HYDROXYCHLOROQUINE
     Dosage: 800 MILLIGRAM, QD (400 MILLIGRAM (0.5 DAY)
     Route: 048
     Dates: start: 202003
  11. HYDROXYCHLOROQUINE [Suspect]
     Active Substance: HYDROXYCHLOROQUINE
     Dosage: 200 MILLIGRAM (0.5 DAY)
     Route: 048
     Dates: start: 202003
  12. HYDROXYCHLOROQUINE [Suspect]
     Active Substance: HYDROXYCHLOROQUINE
     Dosage: 800 MILLIGRAM, QD
     Route: 048

REACTIONS (9)
  - Drug interaction [Unknown]
  - Drug level increased [Unknown]
  - Acute respiratory distress syndrome [Unknown]
  - C-reactive protein increased [Unknown]
  - Coronavirus infection [Unknown]
  - Nephropathy toxic [Unknown]
  - Gastrointestinal disorder [Unknown]
  - Renal failure [Recovering/Resolving]
  - Off label use [Unknown]

NARRATIVE: CASE EVENT DATE: 20200301
